FAERS Safety Report 6516383-2 (Version None)
Quarter: 2009Q4

REPORT INFORMATION
  Report Type: 
  Country: None (occurrence: None)
  Receive Date: 20091223
  Receipt Date: 20091221
  Transmission Date: 20100525
  Serious: Yes (Hospitalization)
  Sender: FDA-Public Use
  Company Number: A0836489A

PATIENT
  Sex: Female

DRUGS (2)
  1. FLIXOTIDE [Suspect]
     Indication: BRONCHIECTASIS
     Dosage: 1PUFF PER DAY
     Route: 055
     Dates: start: 20050101
  2. FORMOTEROL FUMARATE [Concomitant]
     Dosage: 2TAB TWICE PER DAY
     Route: 065
     Dates: start: 20091022

REACTIONS (2)
  - BRONCHIECTASIS [None]
  - DEPRESSION [None]
